FAERS Safety Report 4853787-8 (Version None)
Quarter: 2005Q4

REPORT INFORMATION
  Report Type: 
  Country: None (occurrence: None)
  Receive Date: 20051212
  Receipt Date: 20051128
  Transmission Date: 20060501
  Serious: Yes (Hospitalization, Other)
  Sender: FDA-Public Use
  Company Number: 2005161661

PATIENT
  Age: 55 Year
  Sex: Female

DRUGS (3)
  1. NEURONTIN [Suspect]
     Indication: ILL-DEFINED DISORDER
  2. KETEK [Suspect]
     Indication: ILL-DEFINED DISORDER
     Dates: start: 20051101
  3. ANTIPSYCHOTICS (ANTIPSYCHOTICS) [Suspect]
     Indication: ILL-DEFINED DISORDER

REACTIONS (2)
  - DRUG INTERACTION [None]
  - RHABDOMYOLYSIS [None]
